FAERS Safety Report 22332760 (Version 1)
Quarter: 2023Q2

REPORT INFORMATION
  Report Type: Spontaneous
  Country: CA (occurrence: CA)
  Receive Date: 20230517
  Receipt Date: 20230517
  Transmission Date: 20230721
  Serious: Yes (Death, Hospitalization, Other)
  Sender: FDA-Public Use
  Company Number: CA-002147023-NVSC2023CA112455

PATIENT
  Age: 68 Year
  Sex: Male

DRUGS (5)
  1. ADALIMUMAB [Suspect]
     Active Substance: ADALIMUMAB
     Indication: Cardiac sarcoidosis
     Dosage: UNK
     Route: 058
  2. LEFLUNOMIDE [Concomitant]
     Active Substance: LEFLUNOMIDE
     Indication: Cardiac sarcoidosis
     Dosage: 20 MG, QD
     Route: 065
  3. METHOTREXATE [Concomitant]
     Active Substance: METHOTREXATE
     Indication: Cardiac sarcoidosis
     Dosage: UNK
     Route: 065
  4. PREDNISONE [Concomitant]
     Active Substance: PREDNISONE
     Indication: Cardiac sarcoidosis
     Dosage: 20 MG, QD
     Route: 065
  5. PREDNISONE [Concomitant]
     Active Substance: PREDNISONE
     Indication: Antifungal prophylaxis

REACTIONS (17)
  - Acute respiratory distress syndrome [Fatal]
  - Anuria [Fatal]
  - Blood lactic acid increased [Fatal]
  - Cardiogenic shock [Fatal]
  - Cryptococcosis [Fatal]
  - Exposure to SARS-CoV-2 [Fatal]
  - Fatigue [Fatal]
  - General physical health deterioration [Fatal]
  - Haematoma [Fatal]
  - Hypomagnesaemia [Fatal]
  - Hypotension [Fatal]
  - Malaise [Fatal]
  - Ventricular tachycardia [Fatal]
  - Septic shock [Fatal]
  - Staphylococcal infection [Fatal]
  - Off label use [Fatal]
  - Drug ineffective for unapproved indication [Fatal]
